FAERS Safety Report 4790363-X (Version None)
Quarter: 2005Q4

REPORT INFORMATION
  Report Type: 
  Country: None (occurrence: None)
  Receive Date: 20051005
  Receipt Date: 20051005
  Transmission Date: 20060501
  Serious: Yes (Life-Threatening, Hospitalization)
  Sender: FDA-Public Use
  Company Number: None

PATIENT
  Age: 39 Year
  Sex: Male
  Weight: 80 kg

DRUGS (2)
  1. WARFARIN [Suspect]
     Indication: PROPHYLAXIS
     Dosage: 5MG PO QD
     Route: 048
  2. HYDROCHLOROTHIAZIDE [Concomitant]

REACTIONS (1)
  - DEEP VEIN THROMBOSIS [None]
